FAERS Safety Report 7617271-0 (Version None)
Quarter: 2011Q3

REPORT INFORMATION
  Report Type: 
  Country: None (occurrence: None)
  Receive Date: 20110718
  Receipt Date: 20110713
  Transmission Date: 20111222
  Serious: Yes (Hospitalization)
  Sender: FDA-Public Use
  Company Number: ES-AMGEN-ESPSP2011035766

PATIENT
  Age: 52 Year
  Sex: Female

DRUGS (2)
  1. NPLATE [Suspect]
     Indication: PRODUCT USED FOR UNKNOWN INDICATION
     Dosage: 500 A?G, UNK
     Route: 058
     Dates: start: 20101229, end: 20110310
  2. ARANESP [Concomitant]
     Dosage: 300 A?G, UNK
     Route: 058
     Dates: start: 20101229

REACTIONS (1)
  - ACUTE LEUKAEMIA [None]
